FAERS Safety Report 20323037 (Version 4)
Quarter: 2022Q1

REPORT INFORMATION
  Report Type: Spontaneous
  Country: US (occurrence: US)
  Receive Date: 20220111
  Receipt Date: 20220301
  Transmission Date: 20220424
  Serious: No
  Sender: FDA-Public Use
  Company Number: US-SLATE RUN PHARMACEUTICALS-22US000849

PATIENT

DRUGS (2)
  1. ARFORMOTEROL TARTRATE INHALATION [Suspect]
     Active Substance: ARFORMOTEROL TARTRATE
     Indication: Chronic obstructive pulmonary disease
     Dosage: UNK UNK, BID
     Route: 055
  2. ARFORMOTEROL TARTRATE INHALATION [Suspect]
     Active Substance: ARFORMOTEROL TARTRATE
     Dosage: UNK UNK, BID
     Route: 055
     Dates: start: 20211203

REACTIONS (3)
  - Product container issue [Not Recovered/Not Resolved]
  - Product dose omission issue [Recovered/Resolved]
  - Wrong technique in product usage process [Unknown]
